FAERS Safety Report 6823113 (Version 10)
Quarter: 2012Q4

REPORT INFORMATION
  Report Type: 
  Country: US (occurrence: US)
  Receive Date: 20041110
  Receipt Date: 20121211
  Transmission Date: 20130627
  Serious: Yes (Hospitalization, Other)
  Sender: FDA-Public Use
  Company Number: US-BIOGENIDEC-206848

PATIENT
  Age: 57 Year
  Sex: Female

DRUGS (23)
  1. AVONEX [Suspect]
     Indication: MULTIPLE SCLEROSIS
     Route: 030
  2. AVONEX [Suspect]
     Indication: MULTIPLE SCLEROSIS
     Route: 030
     Dates: start: 20000204, end: 20040924
  3. AVONEX [Suspect]
     Indication: MULTIPLE SCLEROSIS
     Route: 030
     Dates: start: 20060102, end: 20060828
  4. AVONEX [Suspect]
     Indication: MULTIPLE SCLEROSIS
     Route: 030
     Dates: start: 20081222
  5. AVONEX [Suspect]
     Indication: MULTIPLE SCLEROSIS
     Route: 030
     Dates: end: 200910
  6. AVONEX [Suspect]
     Indication: MULTIPLE SCLEROSIS
     Route: 030
     Dates: start: 20101201, end: 20121001
  7. PROZAC [Concomitant]
     Indication: DEPRESSION
     Dates: start: 20040713
  8. BACLOFEN [Concomitant]
     Indication: PRODUCT USED FOR UNKNOWN INDICATION
     Dates: start: 20040713
  9. PROVIGIL [Concomitant]
     Indication: PRODUCT USED FOR UNKNOWN INDICATION
     Dates: start: 20050516
  10. FOSAMAX [Concomitant]
     Indication: PRODUCT USED FOR UNKNOWN INDICATION
     Dates: start: 20040713
  11. VICODIN [Concomitant]
     Indication: PRODUCT USED FOR UNKNOWN INDICATION
  12. CLINDAMYCIN [Concomitant]
     Indication: PRODUCT USED FOR UNKNOWN INDICATION
  13. ZOFRAN [Concomitant]
     Indication: NAUSEA
     Dates: start: 20041220
  14. PROMETHAZINE [Concomitant]
     Indication: PRODUCT USED FOR UNKNOWN INDICATION
  15. NEULASTA [Concomitant]
     Indication: PRODUCT USED FOR UNKNOWN INDICATION
     Dates: start: 20041220
  16. CYTOXAN [Concomitant]
     Indication: PRODUCT USED FOR UNKNOWN INDICATION
     Dates: start: 20041220
  17. DOXYRUBICIN HCL [Concomitant]
     Indication: PRODUCT USED FOR UNKNOWN INDICATION
     Dates: start: 20041220
  18. ARIMIDEX [Concomitant]
     Indication: PRODUCT USED FOR UNKNOWN INDICATION
  19. ^PROVIDAL^ [Concomitant]
     Indication: PRODUCT USED FOR UNKNOWN INDICATION
  20. ^SOLSUMAX^ [Concomitant]
     Indication: PRODUCT USED FOR UNKNOWN INDICATION
  21. MEGESTROL [Concomitant]
     Indication: PRODUCT USED FOR UNKNOWN INDICATION
  22. CALCIUM [Concomitant]
     Indication: PRODUCT USED FOR UNKNOWN INDICATION
  23. VITAMIN D [Concomitant]
     Indication: PRODUCT USED FOR UNKNOWN INDICATION

REACTIONS (4)
  - Breast cancer stage III [Recovered/Resolved]
  - Breast cancer recurrent [Not Recovered/Not Resolved]
  - Gait disturbance [Unknown]
  - Multiple sclerosis relapse [Unknown]
